FAERS Safety Report 7450722-3 (Version None)
Quarter: 2011Q2

REPORT INFORMATION
  Report Type: 
  Country: None (occurrence: None)
  Receive Date: 20110429
  Receipt Date: 20110429
  Transmission Date: 20111010
  Serious: No
  Sender: FDA-Public Use
  Company Number: None

PATIENT
  Age: 13 Year
  Sex: Female
  Weight: 78.0187 kg

DRUGS (1)
  1. RISPERIDONE [Suspect]
     Indication: DYSTHYMIC DISORDER
     Dosage: 1MG BID ORAL
     Route: 048
     Dates: start: 20110418, end: 20110428

REACTIONS (3)
  - OPPOSITIONAL DEFIANT DISORDER [None]
  - AGGRESSION [None]
  - PSYCHOMOTOR HYPERACTIVITY [None]
